FAERS Safety Report 5781192-9 (Version None)
Quarter: 2008Q2

REPORT INFORMATION
  Report Type: 
  Country: None (occurrence: None)
  Receive Date: 20080618
  Receipt Date: 20080603
  Transmission Date: 20081010
  Serious: Yes (Hospitalization)
  Sender: FDA-Public Use
  Company Number: 235323J08USA

PATIENT
  Age: 50 Year
  Sex: Female
  Weight: 90.7194 kg

DRUGS (5)
  1. REBIF [Suspect]
     Indication: MULTIPLE SCLEROSIS
     Dosage: 44 MCG, 1 IN 1 WEEKS, SUBCUTANEOUS, 22 MCG, 3 IN 1 WEEKS, SUBCUTANEOUS
     Route: 058
     Dates: start: 20080408, end: 20080602
  2. REBIF [Suspect]
     Indication: MULTIPLE SCLEROSIS
     Dosage: 44 MCG, 1 IN 1 WEEKS, SUBCUTANEOUS, 22 MCG, 3 IN 1 WEEKS, SUBCUTANEOUS
     Route: 058
     Dates: start: 20080606
  3. WELLBUTRIN [Concomitant]
  4. PROVIGIL [Concomitant]
  5. AVONEX [Concomitant]

REACTIONS (4)
  - HEART RATE ABNORMAL [None]
  - HYPERTENSION [None]
  - PAIN [None]
  - PYREXIA [None]
